FAERS Safety Report 7012365-5 (Version None)
Quarter: 2010Q3

REPORT INFORMATION
  Report Type: 
  Country: None (occurrence: None)
  Receive Date: 20100924
  Receipt Date: 20100914
  Transmission Date: 20110219
  Serious: Yes (Hospitalization)
  Sender: FDA-Public Use
  Company Number: US-JNJFOC-20100904048

PATIENT
  Sex: Male
  Weight: 77.4 kg

DRUGS (8)
  1. INFLIXIMAB, RECOMBINANT [Suspect]
     Indication: CROHN'S DISEASE
     Route: 042
  2. INFLIXIMAB, RECOMBINANT [Suspect]
     Route: 042
  3. INFLIXIMAB, RECOMBINANT [Suspect]
     Route: 042
  4. ANTIHISTAMINES [Concomitant]
  5. ACETAMINOPHEN [Concomitant]
  6. STEROIDS NOS [Concomitant]
  7. TYLENOL [Concomitant]
  8. BENTYL [Concomitant]

REACTIONS (1)
  - CROHN'S DISEASE [None]
